FAERS Safety Report 24942179 (Version 2)
Quarter: 2025Q1

REPORT INFORMATION
  Report Type: Spontaneous
  Country: PT (occurrence: PT)
  Receive Date: 20250207
  Receipt Date: 20250305
  Transmission Date: 20250409
  Serious: No
  Sender: MYLAN
  Company Number: PT-MYLANLABS-2025M1008853

PATIENT

DRUGS (1)
  1. EPIPEN [Suspect]
     Active Substance: EPINEPHRINE
     Indication: Product used for unknown indication

REACTIONS (2)
  - Liquid product physical issue [Unknown]
  - Product quality issue [Unknown]
